FAERS Safety Report 4649023-8 (Version None)
Quarter: 2005Q2

REPORT INFORMATION
  Report Type: 
  Country: None (occurrence: None)
  Receive Date: 20050429
  Receipt Date: 20050203
  Transmission Date: 20051028
  Serious: Yes (Life-Threatening)
  Sender: FDA-Public Use
  Company Number: FR-ROCHE-394632

PATIENT
  Age: 24 Month
  Sex: Female

DRUGS (14)
  1. CELLCEPT [Suspect]
     Route: 048
     Dates: start: 20050120
  2. CORTICOIDS NOS [Concomitant]
     Dosage: 15MG IN THE MORNING AND 13MG IN THE EVENING.
     Route: 048
     Dates: start: 20050118
  3. NEORAL [Concomitant]
     Route: 048
     Dates: start: 20050121
  4. ROVALCYTE [Concomitant]
  5. BACTRIM [Concomitant]
  6. SODIUM CHLORIDE [Concomitant]
  7. SODIUM BICARBONATE [Concomitant]
     Indication: METABOLIC ACIDOSIS
  8. SIMULECT [Concomitant]
     Dates: start: 20050118, end: 20050121
  9. MOPRAL [Concomitant]
     Route: 048
     Dates: start: 20050118
  10. LOVENOX [Concomitant]
     Route: 058
     Dates: start: 20050118, end: 20050214
  11. CACIT D3 [Concomitant]
  12. FUNGIZONE [Concomitant]
  13. ADALATE LP [Concomitant]
  14. ENALAPRIL MALEATE [Concomitant]
     Indication: HYPERTENSION

REACTIONS (2)
  - DRUG TOXICITY [None]
  - ILEAL PERFORATION [None]
